FAERS Safety Report 13171667 (Version 1)
Quarter: 2017Q1

REPORT INFORMATION
  Report Type: Spontaneous
  Country: US (occurrence: US)
  Receive Date: 20170131
  Receipt Date: 20170131
  Transmission Date: 20170428
  Serious: No
  Sender: FDA-Public Use
  Company Number: US-ABBVIE-16K-163-1790123-00

PATIENT
  Sex: Female

DRUGS (1)
  1. HUMIRA [Suspect]
     Active Substance: ADALIMUMAB
     Indication: CROHN^S DISEASE
     Route: 058

REACTIONS (5)
  - Injection site inflammation [Not Recovered/Not Resolved]
  - Injection site erythema [Unknown]
  - Injection site oedema [Not Recovered/Not Resolved]
  - Rash [Unknown]
  - Injection site pain [Unknown]

NARRATIVE: CASE EVENT DATE: 2016
